FAERS Safety Report 5094143-X (Version None)
Quarter: 2006Q3

REPORT INFORMATION
  Report Type: 
  Country: None (occurrence: None)
  Receive Date: 20060831
  Receipt Date: 20060823
  Transmission Date: 20061208
  Serious: Yes (Hospitalization)
  Sender: FDA-Public Use
  Company Number: US-JNJFOC-20060805468

PATIENT
  Sex: Female
  Weight: 67.13 kg

DRUGS (14)
  1. FENTANYL TRANSDERMAL SYSTEM [Suspect]
     Indication: HEADACHE
     Route: 062
  2. PROZAC [Concomitant]
     Indication: DEPRESSION
     Route: 048
  3. PERCOCET [Concomitant]
     Indication: PAIN
     Route: 048
  4. ACTIQ [Concomitant]
     Indication: PAIN
     Route: 002
  5. VALIUM [Concomitant]
     Indication: ANXIETY
     Route: 048
  6. LASIX [Concomitant]
     Route: 048
  7. CO Q 10 [Concomitant]
     Route: 048
  8. ZETIA [Concomitant]
     Route: 048
  9. EPERBEL [Concomitant]
     Indication: MENOPAUSE
     Route: 048
  10. POTASSIUM CHLORIDE [Concomitant]
     Route: 048
  11. SINGULAIR [Concomitant]
     Route: 048
  12. BENICAR [Concomitant]
     Route: 048
  13. CRESTOR [Concomitant]
     Route: 048
  14. ZANTAC [Concomitant]
     Route: 048

REACTIONS (3)
  - FALL [None]
  - INTERVERTEBRAL DISC PROTRUSION [None]
  - THERAPEUTIC RESPONSE DECREASED [None]
